FAERS Safety Report 7980426 (Version 2)
Quarter: 2012Q4

REPORT INFORMATION
  Report Type: 
  Country: AT (occurrence: AT)
  Receive Date: 20110608
  Receipt Date: 20121008
  Transmission Date: 20130627
  Serious: Yes (Death, Other)
  Sender: FDA-Public Use
  Company Number: PHHY2011AT45418

PATIENT
  Age: 86 Year
  Sex: Female

DRUGS (1)
  1. TASIGNA [Suspect]
     Indication: CHRONIC MYELOID LEUKAEMIA
     Dosage: 400 mg, BID
     Route: 048

REACTIONS (2)
  - Gangrene [Fatal]
  - Peripheral arterial occlusive disease [Recovered/Resolved]
